FAERS Safety Report 21617534 (Version 1)
Quarter: 2022Q4

REPORT INFORMATION
  Report Type: Spontaneous
  Country: FR (occurrence: FR)
  Receive Date: 20221119
  Receipt Date: 20221119
  Transmission Date: 20230113
  Serious: Yes (Other)
  Sender: FDA-Public Use
  Company Number: None

PATIENT
  Age: 55 Year
  Sex: Male

DRUGS (2)
  1. ATORVASTATIN [Suspect]
     Active Substance: ATORVASTATIN
     Indication: Dyslipidaemia
     Dosage: UNIT DOSE : 40 MG, FREQUENCY TIME : 1 DAYS, THERAPY START DATE : NASK
     Dates: end: 20220204
  2. PRISTINAMYCIN [Suspect]
     Active Substance: PRISTINAMYCIN
     Indication: Dermo-hypodermitis
     Dosage: FORM STRENGTH : 500 MG, SCORED FILM-COATED TABLET, UNIT DOSE : 2 DOSAGE FORMS, FREQUENCY TIME : 12 H
     Route: 065
     Dates: start: 20220127, end: 20220204

REACTIONS (1)
  - Mixed liver injury [Recovered/Resolved]

NARRATIVE: CASE EVENT DATE: 20220130
